FAERS Safety Report 4357132-6 (Version None)
Quarter: 2004Q2

REPORT INFORMATION
  Report Type: 
  Country: None (occurrence: None)
  Receive Date: 20040511
  Receipt Date: 20040415
  Transmission Date: 20050107
  Serious: Yes (Hospitalization, Other)
  Sender: FDA-Public Use
  Company Number: JP_040302874

PATIENT
  Age: 67 Year
  Sex: Male
  Weight: 56 kg

DRUGS (5)
  1. VANCOMYCIN [Suspect]
     Indication: CELLULITIS
     Dosage: 500 MG/2 DAY
     Dates: start: 20011015, end: 20011203
  2. VANCOMYCIN [Suspect]
     Indication: SEPSIS
     Dosage: 500 MG/2 DAY
     Dates: start: 20011015, end: 20011203
  3. VANCOMYCIN [Suspect]
     Indication: STAPHYLOCOCCAL INFECTION
     Dosage: 500 MG/2 DAY
     Dates: start: 20011015, end: 20011203
  4. CARBENIN [Concomitant]
  5. MORPHINE HYDROCHLORIDE [Concomitant]

REACTIONS (5)
  - ANAEMIA [None]
  - DIALYSIS [None]
  - DISEASE PROGRESSION [None]
  - RENAL IMPAIRMENT [None]
  - SHOCK [None]
